FAERS Safety Report 9568247 (Version 1)
Quarter: 2013Q3

REPORT INFORMATION
  Report Type: Spontaneous
  Country: US (occurrence: US)
  Receive Date: 20130930
  Receipt Date: 20130930
  Transmission Date: 20140515
  Serious: No
  Sender: FDA-Public Use
  Company Number: US-AMGEN-USASP2013055538

PATIENT
  Age: 67 Year
  Sex: Female

DRUGS (2)
  1. ENBREL [Suspect]
     Indication: PSORIATIC ARTHROPATHY
     Dosage: 50 MG, QWK
     Route: 065
     Dates: start: 20030201
  2. ENBREL [Suspect]
     Indication: PSORIASIS

REACTIONS (3)
  - Nail bed disorder [Recovered/Resolved]
  - Nail discolouration [Recovered/Resolved]
  - Injection site pain [Not Recovered/Not Resolved]
